FAERS Safety Report 11128821 (Version 1)
Quarter: 2015Q2

REPORT INFORMATION
  Report Type: Spontaneous
  Country: US (occurrence: None)
  Receive Date: 20150520
  Receipt Date: 20150520
  Transmission Date: 20150821
  Serious: Yes (Disabling)
  Sender: FDA-Public Use
  Company Number: None

PATIENT
  Age: 45 Year
  Sex: Female
  Weight: 52.16 kg

DRUGS (10)
  1. ATIVIAN [Concomitant]
  2. TRAMADOL [Concomitant]
     Active Substance: TRAMADOL
  3. VIT B [Concomitant]
     Active Substance: VITAMINS
  4. VITAMIN D [Concomitant]
     Active Substance: CHOLECALCIFEROL
  5. PROBIOTICS [Concomitant]
     Active Substance: PROBIOTICS NOS
  6. FLEXERIL [Concomitant]
     Active Substance: CYCLOBENZAPRINE HYDROCHLORIDE
  7. VICODIN [Concomitant]
     Active Substance: ACETAMINOPHEN\HYDROCODONE BITARTRATE
  8. NUVARING [Suspect]
     Active Substance: ETHINYL ESTRADIOL\ETONOGESTREL
     Indication: MENSTRUATION IRREGULAR
     Dosage: 1 NUVARING 3 WEEKS
     Route: 067
     Dates: start: 20150401, end: 20150519
  9. ESSURE [Concomitant]
     Active Substance: DEVICE
  10. CELEBREX [Concomitant]
     Active Substance: CELECOXIB

REACTIONS (2)
  - Nausea [None]
  - Migraine [None]

NARRATIVE: CASE EVENT DATE: 20150519
